FAERS Safety Report 5272853-9 (Version None)
Quarter: 2007Q1

REPORT INFORMATION
  Report Type: 
  Country: None (occurrence: None)
  Receive Date: 20070322
  Receipt Date: 20070314
  Transmission Date: 20070707
  Serious: Yes (Other)
  Sender: FDA-Public Use
  Company Number: 2007AP00534

PATIENT
  Sex: Female

DRUGS (4)
  1. CRESTOR [Suspect]
     Indication: HYPERLIPIDAEMIA
     Route: 048
     Dates: start: 20061204, end: 20070112
  2. LIPITOR [Concomitant]
     Route: 048
     Dates: end: 20061204
  3. MICARDIS [Concomitant]
     Route: 048
  4. NORVASC [Concomitant]
     Route: 048

REACTIONS (1)
  - LIVER DISORDER [None]
